FAERS Safety Report 9485692 (Version 1)
Quarter: 2013Q3

REPORT INFORMATION
  Report Type: Spontaneous
  Country: US (occurrence: None)
  Receive Date: 20130827
  Receipt Date: 20130827
  Transmission Date: 20140515
  Serious: No
  Sender: FDA-Public Use
  Company Number: None

PATIENT
  Sex: Male

DRUGS (1)
  1. ENBREL [Suspect]
     Dosage: 50MG, DAILY, SQ
     Route: 058
     Dates: start: 20100630, end: 20130708

REACTIONS (1)
  - Unevaluable event [None]
